FAERS Safety Report 19650667 (Version 1)
Quarter: 2021Q3

REPORT INFORMATION
  Report Type: Spontaneous
  Country: JP (occurrence: JP)
  Receive Date: 20210803
  Receipt Date: 20210803
  Transmission Date: 20211014
  Serious: Yes (Life-Threatening, Hospitalization)
  Sender: FDA-Public Use
  Company Number: JP-TEVA-2021-JP-1938108

PATIENT
  Age: 43 Year
  Sex: Male

DRUGS (4)
  1. NICARDIPINE [Suspect]
     Active Substance: NICARDIPINE
     Indication: PHAEOCHROMOCYTOMA CRISIS
     Dosage: 120 MILLIGRAM DAILY;
     Route: 050
  2. PHENTOLAMINE [Suspect]
     Active Substance: PHENTOLAMINE
     Indication: PHAEOCHROMOCYTOMA CRISIS
     Route: 042
  3. METOCLOPRAMIDE. [Suspect]
     Active Substance: METOCLOPRAMIDE
     Indication: NAUSEA
     Route: 065
  4. PHENTOLAMINE [Suspect]
     Active Substance: PHENTOLAMINE
     Dosage: 48 MILLIGRAM DAILY;
     Route: 050

REACTIONS (4)
  - Phaeochromocytoma crisis [Recovered/Resolved]
  - Drug ineffective [Unknown]
  - Stress cardiomyopathy [Recovered/Resolved]
  - Multiple organ dysfunction syndrome [Recovered/Resolved]
